FAERS Safety Report 5078901-3 (Version None)
Quarter: 2006Q3

REPORT INFORMATION
  Report Type: 
  Country: None (occurrence: None)
  Receive Date: 20060814
  Receipt Date: 20060801
  Transmission Date: 20061208
  Serious: Yes (Other)
  Sender: FDA-Public Use
  Company Number: GBWYE464901AUG06

PATIENT
  Sex: Male

DRUGS (1)
  1. ENBREL [Suspect]
     Indication: RHEUMATOID ARTHRITIS
     Dosage: UNSPECIFIED, ONCE WEEKLY
     Route: 058

REACTIONS (4)
  - BLEEDING TIME PROLONGED [None]
  - BLISTER [None]
  - IMPAIRED HEALING [None]
  - LIP BLISTER [None]
